FAERS Safety Report 5196933-1 (Version None)
Quarter: 2007Q1

REPORT INFORMATION
  Report Type: 
  Country: None (occurrence: None)
  Receive Date: 20070103
  Receipt Date: 20061229
  Transmission Date: 20070707
  Serious: Yes (Hospitalization)
  Sender: FDA-Public Use
  Company Number: DE-ROCHE-476717

PATIENT
  Age: 72 Year
  Sex: Female
  Weight: 71.6 kg

DRUGS (5)
  1. KEVATRIL [Suspect]
     Indication: NAUSEA
     Route: 042
     Dates: start: 20061124, end: 20061125
  2. FLUOROURACIL [Suspect]
     Route: 042
     Dates: start: 20061124, end: 20061124
  3. EPIRUBICIN [Suspect]
     Route: 042
     Dates: start: 20061124, end: 20061124
  4. CYCLOPHOSPHAMIDE [Suspect]
     Route: 042
     Dates: start: 20061124, end: 20061124
  5. DEXAMETHASONE [Suspect]
     Indication: NAUSEA
     Route: 042
     Dates: start: 20061124, end: 20061125

REACTIONS (1)
  - NEUTROPENIA [None]
